FAERS Safety Report 25995651 (Version 2)
Quarter: 2025Q4

REPORT INFORMATION
  Report Type: Spontaneous
  Country: EU (occurrence: EU)
  Receive Date: 20251104
  Receipt Date: 20251111
  Transmission Date: 20260117
  Serious: Yes (Hospitalization, Other)
  Sender: AUROBINDO
  Company Number: EU-MLMSERVICE-20251015-PI676948-00131-1

PATIENT
  Age: 75 Year
  Sex: Female

DRUGS (3)
  1. ENALAPRIL [Interacting]
     Active Substance: ENALAPRIL
     Indication: Hypertension
     Dosage: 5 MILLIGRAM, ONCE A DAY
     Route: 065
  2. LITHIUM CARBONATE [Interacting]
     Active Substance: LITHIUM CARBONATE
     Indication: Bipolar II disorder
     Dosage: 150 MILLIGRAM, 3 TIMES A DAY
     Route: 065
  3. LEVOTHYROXINE [Concomitant]
     Active Substance: LEVOTHYROXINE
     Indication: Hypothyroidism
     Dosage: 75 MICROGRAM, DAILY
     Route: 065

REACTIONS (12)
  - Dyskinesia [Recovered/Resolved]
  - Choreoathetosis [Recovered/Resolved]
  - Toxicity to various agents [Recovered/Resolved]
  - Cerebral small vessel ischaemic disease [Unknown]
  - Drug interaction [Recovered/Resolved]
  - Asthenia [Unknown]
  - Electroencephalogram abnormal [Unknown]
  - Diarrhoea [Unknown]
  - Gait disturbance [Recovered/Resolved]
  - Tremor [Recovered/Resolved]
  - Condition aggravated [Recovered/Resolved]
  - Labelled drug-drug interaction medication error [Unknown]
